FAERS Safety Report 17374642 (Version 4)
Quarter: 2021Q1

REPORT INFORMATION
  Report Type: Spontaneous
  Country: US (occurrence: US)
  Receive Date: 20200205
  Receipt Date: 20210104
  Transmission Date: 20210419
  Serious: No
  Sender: FDA-Public Use
  Company Number: US-PFIZER INC-2020052257

PATIENT
  Age: 70 Year
  Sex: Female

DRUGS (1)
  1. PREMARIN [Suspect]
     Active Substance: ESTROGENS, CONJUGATED
     Indication: VULVOVAGINAL DRYNESS
     Dosage: UNK, ALTERNATE DAY (TAKING EVERY OTHER DAY)

REACTIONS (5)
  - Frustration tolerance decreased [Unknown]
  - Affective disorder [Unknown]
  - Hypoacusis [Unknown]
  - Panic reaction [Unknown]
  - Intentional product misuse [Unknown]
